FAERS Safety Report 22354646 (Version 1)
Quarter: 2023Q2

REPORT INFORMATION
  Report Type: Spontaneous
  Country: US (occurrence: None)
  Receive Date: 20230522
  Receipt Date: 20230522
  Transmission Date: 20230722
  Serious: Yes (Other)
  Sender: FDA-Public Use
  Company Number: None

PATIENT
  Age: 2 Year
  Sex: Male
  Weight: 13.5 kg

DRUGS (1)
  1. PREDNISOLONE SODIUM PHOSPHATE [Suspect]
     Active Substance: PREDNISOLONE SODIUM PHOSPHATE
     Indication: Infection
     Dosage: OTHER QUANTITY : 30 DROP(S);?FREQUENCY : DAILY;?
     Route: 048
     Dates: start: 20230417, end: 20230423

REACTIONS (4)
  - Urticaria [None]
  - Skin fissures [None]
  - Intellectual disability [None]
  - Recalled product administered [None]

NARRATIVE: CASE EVENT DATE: 20210418
